FAERS Safety Report 13963181 (Version 1)
Quarter: 2017Q3

REPORT INFORMATION
  Report Type: Report from Study
  Country: None (occurrence: US)
  Receive Date: 20170913
  Receipt Date: 20170913
  Transmission Date: 20171128
  Serious: Yes (Other)
  Sender: FDA-Public Use
  Company Number: US-ABBVIE-17K-163-2096949-00

PATIENT
  Sex: Female

DRUGS (1)
  1. HUMIRA [Suspect]
     Active Substance: ADALIMUMAB
     Indication: PSORIASIS
     Route: 058
     Dates: start: 2016, end: 201708

REACTIONS (3)
  - Bile duct stenosis [Recovered/Resolved]
  - Abdominal pain [Recovering/Resolving]
  - Hepatic mass [Recovered/Resolved]

NARRATIVE: CASE EVENT DATE: 2017
